FAERS Safety Report 6011762-4 (Version None)
Quarter: 2008Q4

REPORT INFORMATION
  Report Type: 
  Country: None (occurrence: None)
  Receive Date: 20081218
  Receipt Date: 20080410
  Transmission Date: 20090506
  Serious: No
  Sender: FDA-Public Use
  Company Number: US-ABBOTT-08P-163-0446821-00

PATIENT
  Sex: Female
  Weight: 90.8 kg

DRUGS (7)
  1. MERIDIA [Suspect]
     Indication: WEIGHT CONTROL
     Route: 048
     Dates: start: 20060101
  2. MERIDIA [Suspect]
     Route: 048
     Dates: start: 20080201
  3. BUPROPION HCL [Concomitant]
     Indication: DEPRESSION
     Route: 048
  4. FLUOXETINE HYDROCHLORIDE [Concomitant]
     Indication: DEPRESSION
     Route: 048
  5. ZIPRASIDONE HYDROCHLORIDE [Concomitant]
     Indication: DEPRESSION
     Route: 048
  6. VERAPAMIL [Concomitant]
     Indication: BLOOD PRESSURE
     Route: 048
  7. SPIRONOLACTONE [Concomitant]
     Indication: BLOOD PRESSURE
     Route: 048

REACTIONS (1)
  - WEIGHT INCREASED [None]
